FAERS Safety Report 8565142-8 (Version None)
Quarter: 2012Q3

REPORT INFORMATION
  Report Type: 
  Country: None (occurrence: None)
  Receive Date: 20120803
  Receipt Date: 20120731
  Transmission Date: 20120928
  Serious: No
  Sender: FDA-Public Use
  Company Number: US-PFIZER INC-2012165237

PATIENT
  Sex: Male

DRUGS (1)
  1. INLYTA [Suspect]
     Dosage: 5 MG, TAKE 1 TABLET 2 TIMES A DAY
     Route: 048

REACTIONS (3)
  - ABDOMINAL PAIN [None]
  - HEPATIC PAIN [None]
  - BACK PAIN [None]
